FAERS Safety Report 5039099-0 (Version None)
Quarter: 2006Q2

REPORT INFORMATION
  Report Type: 
  Country: None (occurrence: None)
  Receive Date: 20060629
  Receipt Date: 20060619
  Transmission Date: 20061013
  Serious: Yes (Other)
  Sender: FDA-Public Use
  Company Number: FR-MERCK-0606USA04450

PATIENT
  Age: 48 Year
  Sex: Male

DRUGS (3)
  1. HYDROCORTONE [Suspect]
     Route: 048
  2. PREDNISOLONE [Suspect]
     Route: 065
  3. FLUDROCORTISONE [Concomitant]
     Indication: HORMONE REPLACEMENT THERAPY
     Route: 065

REACTIONS (4)
  - BLINDNESS [None]
  - BLINDNESS UNILATERAL [None]
  - MENINGITIS CRYPTOCOCCAL [None]
  - VITRITIS [None]
